FAERS Safety Report 25314155 (Version 2)
Quarter: 2025Q2

REPORT INFORMATION
  Report Type: Spontaneous
  Country: US (occurrence: US)
  Receive Date: 20250514
  Receipt Date: 20250611
  Transmission Date: 20250717
  Serious: No
  Sender: GLAXOSMITHKLINE
  Company Number: US-GSK-US2025053876

PATIENT
  Age: 82 Year
  Sex: Female

DRUGS (5)
  1. BREO ELLIPTA [Suspect]
     Active Substance: FLUTICASONE FUROATE\VILANTEROL TRIFENATATE
     Indication: Lung disorder
     Dosage: 1 PUFF(S), QD,200/25MCG
  2. METOPROLOL [Concomitant]
     Active Substance: METOPROLOL
     Indication: Blood pressure measurement
  3. BUMETANIDE [Concomitant]
     Active Substance: BUMETANIDE
     Indication: Blood pressure measurement
  4. XANAX [Concomitant]
     Active Substance: ALPRAZOLAM
     Indication: Anxiety
  5. CLARITIN [Concomitant]
     Active Substance: LORATADINE
     Indication: Multiple allergies
     Dosage: UNK, QD

REACTIONS (4)
  - Eye contusion [Unknown]
  - Prescription drug used without a prescription [Unknown]
  - Off label use [Unknown]
  - Product complaint [Unknown]

NARRATIVE: CASE EVENT DATE: 20250426
